FAERS Safety Report 7343776-6 (Version None)
Quarter: 2011Q1

REPORT INFORMATION
  Report Type: 
  Country: None (occurrence: None)
  Receive Date: 20110308
  Receipt Date: 20110308
  Transmission Date: 20110831
  Serious: Yes (Other)
  Sender: FDA-Public Use
  Company Number: None

PATIENT
  Sex: Female
  Weight: 78.4723 kg

DRUGS (2)
  1. ABILIFY [Suspect]
     Indication: FIBROMYALGIA
     Dosage: 1 TABLET DAILY PO
     Route: 048
  2. ABILIFY [Suspect]
     Indication: PAIN
     Dosage: 1 TABLET DAILY PO
     Route: 048

REACTIONS (5)
  - HYPERTENSION [None]
  - WEIGHT INCREASED [None]
  - PNEUMONIA [None]
  - OROPHARYNGEAL PAIN [None]
  - PYREXIA [None]
